FAERS Safety Report 9396263 (Version 3)
Quarter: 2014Q4

REPORT INFORMATION
  Report Type: Spontaneous
  Country: AU (occurrence: None)
  Receive Date: 20130702
  Receipt Date: 20141106
  Transmission Date: 20150529
  Serious: Yes (Hospitalization, Other)
  Sender: FDA-Public Use
  Company Number: GAM-184-13-AU

PATIENT
  Age: 60 Year
  Sex: Male

DRUGS (12)
  1. MOXONIDINE [Concomitant]
     Active Substance: MOXONIDINE
  2. OCTAGAM IMMUNE GLOBULIN (HUMAN) [Suspect]
     Active Substance: HUMAN IMMUNOGLOBULIN G
     Indication: TRANSPLANT REJECTION
     Route: 042
     Dates: start: 20130610, end: 20130610
  3. TACROLIMUS. [Concomitant]
     Active Substance: TACROLIMUS
  4. EZETIMBE [Concomitant]
     Active Substance: EZETIMIBE
  5. PANTOPRAZOLE [Concomitant]
     Active Substance: PANTOPRAZOLE SODIUM
  6. MYCOPHENOLATE [Concomitant]
     Active Substance: MYCOPHENOLIC ACID
  7. SULFAMETHOXAZOLE AND TRIMETHOPRIM [Concomitant]
     Active Substance: SULFAMETHOXAZOLE\TRIMETHOPRIM
  8. METOPROLOL [Concomitant]
     Active Substance: METOPROLOL
  9. PREDNISOLONE. [Concomitant]
     Active Substance: PREDNISOLONE
  10. MAGNESIUM [Concomitant]
     Active Substance: MAGNESIUM
  11. METHYLDOPA. [Concomitant]
     Active Substance: METHYLDOPA
  12. ROSUVASTATIN [Concomitant]
     Active Substance: ROSUVASTATIN

REACTIONS (5)
  - Pyrexia [None]
  - Chills [None]
  - Suspected transmission of an infectious agent via product [None]
  - Bacteraemia [None]
  - Neisseria infection [None]

NARRATIVE: CASE EVENT DATE: 20130610
